FAERS Safety Report 5310296-X (Version None)
Quarter: 2007Q2

REPORT INFORMATION
  Report Type: 
  Country: None (occurrence: None)
  Receive Date: 20070427
  Receipt Date: 20070418
  Transmission Date: 20071010
  Serious: Yes (Other)
  Sender: FDA-Public Use
  Company Number: US-SANOFI-SYNTHELABO-A03200702649

PATIENT
  Sex: Male
  Weight: 88.6 kg

DRUGS (11)
  1. AMBIEN [Suspect]
     Indication: SLEEP DISORDER
     Dosage: 5 TO 10 MG AT NIGHT QHS
     Route: 048
     Dates: start: 20030101
  2. ASPIRIN [Concomitant]
     Dosage: UNK
     Route: 065
     Dates: start: 20010101
  3. NEXIUM [Concomitant]
     Dosage: UNK
     Route: 065
     Dates: start: 20010101
  4. LOTREL [Concomitant]
     Dosage: UNK
     Route: 065
     Dates: start: 20040101
  5. MIRAPEX [Concomitant]
     Dosage: UNK
     Route: 065
     Dates: start: 20030101
  6. LEVSIN [Concomitant]
     Dosage: UNK
     Route: 065
     Dates: start: 20040101
  7. NEURONTIN [Concomitant]
     Dosage: UNK
     Route: 065
     Dates: start: 20030101
  8. DARVOCET [Concomitant]
     Dosage: UNK
     Route: 065
     Dates: start: 20020101
  9. CRESTOR [Concomitant]
     Dosage: UNK
     Route: 065
     Dates: start: 20050101
  10. ZANAFLEX [Suspect]
     Indication: MYALGIA
     Route: 048
     Dates: start: 20030101
  11. ACTIQ [Suspect]
     Indication: FIBROMYALGIA
     Dosage: 400 MG FIVE TIMES/DAY
     Route: 048
     Dates: start: 20050101

REACTIONS (2)
  - IMPAIRED DRIVING ABILITY [None]
  - SOMNOLENCE [None]
